FAERS Safety Report 8146311-8 (Version None)
Quarter: 2012Q1

REPORT INFORMATION
  Report Type: 
  Country: None (occurrence: None)
  Receive Date: 20120217
  Receipt Date: 20120206
  Transmission Date: 20120608
  Serious: Yes (Other)
  Sender: FDA-Public Use
  Company Number: AU-ROCHE-1030834

PATIENT
  Age: 38 Year
  Sex: Male

DRUGS (2)
  1. PEGINTERFERON ALFA-2A [Suspect]
     Indication: HEPATITIS C
  2. RIBAVIRIN [Suspect]
     Indication: HEPATITIS C

REACTIONS (1)
  - MICROSCOPIC POLYANGIITIS [None]
